FAERS Safety Report 23228908 (Version 1)
Quarter: 2023Q4

REPORT INFORMATION
  Report Type: Spontaneous
  Country: US (occurrence: None)
  Receive Date: 20231126
  Receipt Date: 20231126
  Transmission Date: 20240110
  Serious: No
  Sender: FDA-Public Use
  Company Number: US-ROCHE-3296789

PATIENT
  Age: 55 Year
  Sex: Female
  Weight: 65.376 kg

DRUGS (5)
  1. HERCEPTIN [Suspect]
     Active Substance: TRASTUZUMAB
     Indication: HER2 positive breast cancer
     Dosage: PATIENT STATES SHE THINKS SHE STOPPED AROUND NOV/2021 AND WERE INFUSED THROUGH THEIR PORT
     Route: 042
     Dates: start: 20210930, end: 2021
  2. HERCEPTIN [Suspect]
     Active Substance: TRASTUZUMAB
     Dosage: PATIENT STATED THEY WERE INFUSED THROUGH THEIR PORT
     Route: 042
     Dates: start: 20210518, end: 20220921
  3. PERJETA [Suspect]
     Active Substance: PERTUZUMAB
     Indication: HER2 positive breast cancer
     Dosage: PATIENT STATES SHE THINKS SHE STOPPED AROUND NOV/2021 AND WERE INFUSED THROUGH THEIR PORT
     Route: 042
     Dates: start: 20210930, end: 2021
  4. PERJETA [Suspect]
     Active Substance: PERTUZUMAB
     Dosage: PATIENT STATED THEY WERE INFUSED THROUGH THEIR PORT
     Route: 042
     Dates: start: 20210518, end: 20220921
  5. PHESGO [Suspect]
     Active Substance: HYALURONIDASE-ZZXF\PERTUZUMAB\TRASTUZUMAB
     Indication: HER2 positive breast cancer
     Dosage: PATIENT STATES THEY BEGAN IT WHATEVER WEEK THEY INITIALLY STOPPED PRODUCT 1 + 2
     Route: 058
     Dates: start: 202111, end: 20220504

REACTIONS (3)
  - Alopecia [Recovering/Resolving]
  - White blood cell count decreased [Recovered/Resolved]
  - Hair texture abnormal [Unknown]

NARRATIVE: CASE EVENT DATE: 20220101
